FAERS Safety Report 7995537-2 (Version None)
Quarter: 2011Q4

REPORT INFORMATION
  Report Type: 
  Country: None (occurrence: None)
  Receive Date: 20111220
  Receipt Date: 20111219
  Transmission Date: 20120403
  Serious: No
  Sender: FDA-Public Use
  Company Number: US-PFIZER INC-2011307869

PATIENT
  Sex: Male
  Weight: 78.005 kg

DRUGS (1)
  1. ADVIL COLD AND SINUS [Suspect]
     Indication: NASOPHARYNGITIS
     Dosage: 400 MG, DAILY
     Dates: start: 20111215, end: 20111217

REACTIONS (1)
  - DRUG INEFFECTIVE [None]
